FAERS Safety Report 17126857 (Version 1)
Quarter: 2019Q4

REPORT INFORMATION
  Report Type: Spontaneous
  Country: JP (occurrence: JP)
  Receive Date: 20191209
  Receipt Date: 20191209
  Transmission Date: 20200122
  Serious: Yes (Death)
  Sender: FDA-Public Use
  Company Number: JP-AMGEN-JPNSP2019204810

PATIENT
  Age: 7 Decade
  Sex: Female

DRUGS (1)
  1. ROMIPLATE [Suspect]
     Active Substance: ROMIPLOSTIM
     Indication: APLASTIC ANAEMIA
     Dosage: 10 MICROGRAM
     Route: 058
     Dates: start: 201910

REACTIONS (1)
  - Infection [Fatal]

NARRATIVE: CASE EVENT DATE: 201911
